FAERS Safety Report 4682707-4 (Version None)
Quarter: 2005Q2

REPORT INFORMATION
  Report Type: 
  Country: None (occurrence: None)
  Receive Date: 20050531
  Receipt Date: 20050310
  Transmission Date: 20051028
  Serious: No
  Sender: FDA-Public Use
  Company Number: 2005BI001057

PATIENT
  Age: 26 Year
  Sex: Female

DRUGS (4)
  1. AMEVIVE [Suspect]
     Indication: PSORIASIS
     Dosage: 15 MG; QW; IM
     Route: 030
     Dates: start: 20040401, end: 20040916
  2. CLOBETASOL [Concomitant]
  3. DOVONEX [Concomitant]
  4. PROTOPIC [Concomitant]

REACTIONS (3)
  - CD4 LYMPHOCYTES DECREASED [None]
  - LYMPHOCYTE COUNT DECREASED [None]
  - NASOPHARYNGITIS [None]
